FAERS Safety Report 24992587 (Version 3)
Quarter: 2025Q1

REPORT INFORMATION
  Report Type: Spontaneous
  Country: JP (occurrence: JP)
  Receive Date: 20250221
  Receipt Date: 20250326
  Transmission Date: 20250409
  Serious: Yes (Hospitalization, Other)
  Sender: MERCK SHARP & DOHME LLC
  Company Number: JP-009507513-2255603

PATIENT
  Age: 65 Year
  Sex: Female
  Weight: 54.5 kg

DRUGS (3)
  1. KEYTRUDA [Suspect]
     Active Substance: PEMBROLIZUMAB
     Indication: Cervix carcinoma recurrent
     Route: 041
     Dates: start: 20231207, end: 20240723
  2. BEVACIZUMAB [Concomitant]
     Active Substance: BEVACIZUMAB
     Dates: end: 20240724
  3. LENVATINIB MESYLATE [Suspect]
     Active Substance: LENVATINIB MESYLATE

REACTIONS (3)
  - Immune-mediated enterocolitis [Recovered/Resolved]
  - Immune-mediated enterocolitis [Unknown]
  - Immune-mediated lung disease [Recovered/Resolved with Sequelae]

NARRATIVE: CASE EVENT DATE: 20240509
